FAERS Safety Report 8044598-3 (Version None)
Quarter: 2012Q1

REPORT INFORMATION
  Report Type: 
  Country: None (occurrence: None)
  Receive Date: 20120113
  Receipt Date: 20120113
  Transmission Date: 20120608
  Serious: No
  Sender: FDA-Public Use
  Company Number: None

PATIENT
  Age: 60 Year
  Sex: Male
  Weight: 73.481 kg

DRUGS (2)
  1. TAMSULOSIN HCL [Concomitant]
     Indication: LOWER URINARY TRACT SYMPTOMS
     Dosage: 0.4 MG
     Route: 048
     Dates: start: 20110823, end: 20111205
  2. DUTASTERIDE [Suspect]
     Indication: LOWER URINARY TRACT SYMPTOMS
     Dosage: 0.5 MG
     Route: 048
     Dates: start: 20110823, end: 20111205

REACTIONS (5)
  - EXERCISE TOLERANCE DECREASED [None]
  - MOTOR DYSFUNCTION [None]
  - ASTHENIA [None]
  - MYALGIA [None]
  - MUSCULOSKELETAL STIFFNESS [None]
